FAERS Safety Report 7589488-5 (Version None)
Quarter: 2011Q3

REPORT INFORMATION
  Report Type: 
  Country: None (occurrence: None)
  Receive Date: 20110705
  Receipt Date: 20110621
  Transmission Date: 20111222
  Serious: Yes (Hospitalization)
  Sender: FDA-Public Use
  Company Number: IT-ROCHE-784397

PATIENT
  Sex: Male

DRUGS (7)
  1. PHENYLPROPANOLAMINE HCL [Suspect]
     Dosage: DAILY
     Route: 048
     Dates: start: 20050205, end: 20100205
  2. FLUPHENAZINE HCL [Suspect]
     Dosage: CYCLIC
     Route: 030
     Dates: start: 20100202, end: 20100202
  3. ASPIRIN [Concomitant]
  4. VALIUM [Suspect]
     Dosage: DAILY
     Route: 048
     Dates: start: 20000205, end: 20100205
  5. LORAZEPAM [Suspect]
     Dosage: DAILY
     Route: 048
     Dates: start: 20050205, end: 20100205
  6. AKINETON [Concomitant]
     Route: 048
  7. MICROSER [Concomitant]
     Route: 048

REACTIONS (2)
  - BRADYPHRENIA [None]
  - BRADYKINESIA [None]
